FAERS Safety Report 23223683 (Version 1)
Quarter: 2023Q4

REPORT INFORMATION
  Report Type: Spontaneous
  Country: FR (occurrence: FR)
  Receive Date: 20231124
  Receipt Date: 20231124
  Transmission Date: 20240110
  Serious: Yes (Life-Threatening, Hospitalization)
  Sender: FDA-Public Use
  Company Number: None

PATIENT
  Age: 76 Year
  Sex: Female
  Weight: 54 kg

DRUGS (5)
  1. DULOXETINE [Suspect]
     Active Substance: DULOXETINE
     Indication: Product used for unknown indication
     Dosage: THERAPY START DATE: ASKU, UNIT DOSE:1 DF, FREQUENCY TIME:1 DAYS
     Dates: end: 20231021
  2. TRULICITY [Suspect]
     Active Substance: DULAGLUTIDE
     Indication: Type 2 diabetes mellitus
     Dosage: UNIT DOSE:1 DF, FREQUENCY TIME:1 DAYS, THERAPY START DATE:ASKU
     Dates: end: 20231021
  3. DAPAGLIFLOZIN [Suspect]
     Active Substance: DAPAGLIFLOZIN
     Indication: Type 2 diabetes mellitus
     Dosage: UNIT DOSE:1 DF, FREQUENCY TIME:1 DAYS
     Dates: start: 202310, end: 20231021
  4. BISOPROLOL FUMARATE [Concomitant]
     Active Substance: BISOPROLOL FUMARATE
     Indication: Product used for unknown indication
     Dosage: UNIT DOSE:1DF,FREQUENCY TIME:1 DAYS, THERAPY START DATE:ASKU
     Dates: end: 20231021
  5. KARDEGIC [Concomitant]
     Active Substance: ASPIRIN DL-LYSINE
     Indication: Product used for unknown indication
     Dosage: THERAPY START DATE: ASKU, UNIT DOSE:1 DF, FREQUENCY TIME:! DAYS
     Dates: end: 20231021

REACTIONS (1)
  - Diabetic ketoacidotic hyperglycaemic coma [Recovered/Resolved]

NARRATIVE: CASE EVENT DATE: 20231021
